FAERS Safety Report 10982945 (Version 1)
Quarter: 2015Q1

REPORT INFORMATION
  Report Type: Spontaneous
  Country: FR (occurrence: None)
  Receive Date: 20150302
  Receipt Date: 20150302
  Transmission Date: 20150721
  Serious: Yes (Disabling)
  Sender: FDA-Public Use
  Company Number: 2014SYM00151

PATIENT
  Age: 63 Year
  Sex: Female

DRUGS (5)
  1. KARDEGIC [Concomitant]
     Active Substance: ASPIRIN LYSINE
  2. LEVOTHYROX (LEVOTHYROXINE SODIUM) [Concomitant]
     Active Substance: LEVOTHYROXINE SODIUM
  3. INSULIN (INSULIN) [Concomitant]
     Active Substance: INSULIN NOS
  4. ACEON [Suspect]
     Active Substance: PERINDOPRIL ERBUMINE
     Indication: HYPERTENSION
     Route: 048
     Dates: start: 2009
  5. PRAVSTATIN SODIUM (PRAVASTATIN SODIUM) [Concomitant]

REACTIONS (1)
  - Cough [None]

NARRATIVE: CASE EVENT DATE: 2012
